FAERS Safety Report 10488251 (Version 1)
Quarter: 2014Q4

REPORT INFORMATION
  Report Type: Spontaneous
  Country: CA (occurrence: CA)
  Receive Date: 20141002
  Receipt Date: 20141002
  Transmission Date: 20150528
  Serious: Yes (Other)
  Sender: FDA-Public Use
  Company Number: PHHY2014CA125032

PATIENT
  Age: 44 Year
  Sex: Female

DRUGS (12)
  1. AZATHIOPRINE. [Interacting]
     Active Substance: AZATHIOPRINE
     Dosage: 50 MG, UNK
  2. AZATHIOPRINE. [Interacting]
     Active Substance: AZATHIOPRINE
     Dosage: 150 MG, UNK
  3. ALLOPURINOL. [Suspect]
     Active Substance: ALLOPURINOL
     Dosage: 100 MG, UNK
  4. CORTICOSTEROIDS [Concomitant]
     Active Substance: CORTICOSTEROID NOS
  5. AZATHIOPRINE. [Suspect]
     Active Substance: AZATHIOPRINE
     Dosage: 250 MG, UNK
  6. AZATHIOPRINE. [Interacting]
     Active Substance: AZATHIOPRINE
     Dosage: 25 MG, UNK
  7. AZATHIOPRINE. [Interacting]
     Active Substance: AZATHIOPRINE
     Dosage: 125 MG, UNK
  8. FEBUXOSTAT. [Interacting]
     Active Substance: FEBUXOSTAT
     Dosage: 40 MG, UNK
  9. RITUXIMAB [Suspect]
     Active Substance: RITUXIMAB
  10. IMMUNOGLOBULINS [Suspect]
     Active Substance: HUMAN IMMUNOGLOBULIN G
  11. METHOTREXATE [Suspect]
     Active Substance: METHOTREXATE
  12. MYCOPHENOLATE MOFETIL. [Suspect]
     Active Substance: MYCOPHENOLATE MOFETIL
     Route: 058

REACTIONS (7)
  - Eosinophilia [Unknown]
  - Drug reaction with eosinophilia and systemic symptoms [Unknown]
  - Pyrexia [Unknown]
  - Hepatic mass [Unknown]
  - Myopathy [Unknown]
  - Drug interaction [Unknown]
  - Drug ineffective [Unknown]
